FAERS Safety Report 7023866-8 (Version None)
Quarter: 2010Q4

REPORT INFORMATION
  Report Type: 
  Country: None (occurrence: None)
  Receive Date: 20101001
  Receipt Date: 20100921
  Transmission Date: 20110411
  Serious: Yes (Hospitalization)
  Sender: FDA-Public Use
  Company Number: SE-JNJFOC-20100906945

PATIENT
  Sex: Female
  Weight: 50 kg

DRUGS (3)
  1. REMICADE [Suspect]
     Indication: COLITIS ULCERATIVE
     Route: 042
  2. OXYCODONE [Concomitant]
     Indication: PAIN
  3. FLUCLOXACILLIN [Concomitant]
     Dosage: FREQUENCY 3

REACTIONS (3)
  - COLECTOMY [None]
  - COLITIS ULCERATIVE [None]
  - POSTOPERATIVE ABSCESS [None]
